FAERS Safety Report 7646310-6 (Version None)
Quarter: 2011Q3

REPORT INFORMATION
  Report Type: 
  Country: None (occurrence: None)
  Receive Date: 20110801
  Receipt Date: 20110725
  Transmission Date: 20111222
  Serious: Yes (Hospitalization, Other)
  Sender: FDA-Public Use
  Company Number: JP-SHIRE-SPV1-2010-01007

PATIENT

DRUGS (12)
  1. OMEPRAZOLE [Concomitant]
     Indication: GASTROOESOPHAGEAL REFLUX DISEASE
     Dosage: 10 MG, UNKNOWN
     Route: 048
     Dates: end: 20110419
  2. CINACALCET HYDROCHLORIDE [Concomitant]
     Indication: HYPERPARATHYROIDISM SECONDARY
     Dosage: 25 MG, UNKNOWN
     Route: 048
     Dates: start: 20091113
  3. SEVELAMER HYDROCHLORIDE [Concomitant]
     Indication: HYPERPHOSPHATAEMIA
     Dosage: 1500 MG, UNKNOWN
     Route: 048
  4. LANTHANUM CARBONATE [Suspect]
     Indication: HYPERPHOSPHATAEMIA
     Dosage: 750 MG, 1X/DAY:QD
     Route: 048
     Dates: start: 20090411, end: 20090514
  5. CALCIUM CARBONATE [Concomitant]
     Indication: HYPERPHOSPHATAEMIA
     Dosage: 1000 MG, UNKNOWN
     Route: 048
  6. OMEPRAZOLE [Concomitant]
     Indication: GASTRIC POLYPS
     Dosage: 20 MG, UNKNOWN
     Route: 048
     Dates: start: 20110420
  7. KARY UNI                           /00528801/ [Concomitant]
     Indication: CATARACT
     Dosage: UNK, UNKNOWN
     Route: 031
  8. ROCALTROL [Concomitant]
     Indication: PRODUCT USED FOR UNKNOWN INDICATION
     Dosage: 1.5 ?G, 1X/WEEK
     Route: 042
  9. LANTHANUM CARBONATE [Suspect]
     Dosage: 1000 MG, 1X/DAY:QD
     Route: 048
     Dates: start: 20090515
  10. PURSENNID                          /00142207/ [Concomitant]
     Indication: CONSTIPATION
     Dosage: 48 MG, UNKNOWN
     Route: 048
  11. NITRAZEPAM [Concomitant]
     Indication: INSOMNIA
     Dosage: 5 MG, UNKNOWN
     Route: 048
  12. LACRIMIN [Concomitant]
     Indication: CATARACT
     Dosage: UNK, UNKNOWN
     Route: 031

REACTIONS (4)
  - MENINGIOMA [None]
  - TRIGGER FINGER [None]
  - GASTRIC CANCER [None]
  - CONTUSION [None]
